FAERS Safety Report 4316614-3 (Version None)
Quarter: 2004Q1

REPORT INFORMATION
  Report Type: 
  Country: None (occurrence: None)
  Receive Date: 20040311
  Receipt Date: 20040301
  Transmission Date: 20041129
  Serious: Yes (Life-Threatening)
  Sender: FDA-Public Use
  Company Number: 2004IC000040

PATIENT
  Age: 48 Year
  Sex: Male

DRUGS (3)
  1. FLUOROURACIL [Suspect]
     Indication: COLON CANCER
     Dosage: 400 MG/M**2; UNKNOWN; INTRAVENOUS BOLUS ; 2400 MG/M**2'; UNKNOWN; INTRAVENOUS
     Route: 040
     Dates: start: 20040113, end: 20040113
  2. FLUOROURACIL [Suspect]
     Indication: COLON CANCER
     Dosage: 400 MG/M**2; UNKNOWN; INTRAVENOUS BOLUS ; 2400 MG/M**2'; UNKNOWN; INTRAVENOUS
     Route: 040
     Dates: start: 20040113, end: 20040115
  3. LEUCOVORIN CALCIUM [Suspect]
     Indication: COLON CANCER
     Dosage: 200 MG/M**2; UNKNOWN; INTRAVENOUS
     Route: 042
     Dates: start: 20040113, end: 20040113

REACTIONS (9)
  - BONE MARROW DEPRESSION [None]
  - CIRCULATORY COLLAPSE [None]
  - COMA [None]
  - DIARRHOEA [None]
  - DIHYDROPYRIMIDINE DEHYDROGENASE DEFICIENCY [None]
  - ENZYME ABNORMALITY [None]
  - MUCOSAL INFLAMMATION [None]
  - PYREXIA [None]
  - RESPIRATORY DISTRESS [None]
